FAERS Safety Report 5287037-8 (Version None)
Quarter: 2007Q1

REPORT INFORMATION
  Report Type: 
  Country: None (occurrence: None)
  Receive Date: 20070330
  Receipt Date: 20070319
  Transmission Date: 20070707
  Serious: Yes (Hospitalization)
  Sender: FDA-Public Use
  Company Number: 2007BI000048

PATIENT
  Age: 44 Year
  Sex: Female
  Weight: 176.9028 kg

DRUGS (1)
  1. AVONEX [Suspect]
     Indication: MULTIPLE SCLEROSIS
     Dosage: 30 UG; QW; IM
     Route: 030
     Dates: start: 20060627

REACTIONS (6)
  - BACK PAIN [None]
  - DEHYDRATION [None]
  - DRUG ADMINISTRATION ERROR [None]
  - GASTROENTERITIS [None]
  - RENAL FAILURE ACUTE [None]
  - RENAL TUBULAR NECROSIS [None]
